FAERS Safety Report 10206321 (Version 2)
Quarter: 2014Q2

REPORT INFORMATION
  Report Type: Report from Study
  Country: BR (occurrence: BR)
  Receive Date: 20140530
  Receipt Date: 20140530
  Transmission Date: 20141212
  Serious: Yes (Other)
  Sender: FDA-Public Use
  Company Number: PHHY2014BR053168

PATIENT
  Age: 66 Year
  Sex: Female
  Weight: 71 kg

DRUGS (3)
  1. ACLASTA [Suspect]
     Indication: OSTEOPENIA
     Dosage: 1 APPLICATION (5 MG) EVERY YEAR
     Route: 042
     Dates: start: 20140428
  2. SERTRALINE HYDROCHLORIDE [Concomitant]
     Indication: DEPRESSION
     Dosage: 2 DF, DAILY
     Route: 048
     Dates: start: 2010
  3. EBIX [Concomitant]
     Indication: AMNESIA
     Dosage: 0.5 DF DAILY
     Route: 048
     Dates: start: 201404

REACTIONS (5)
  - Syncope [Recovering/Resolving]
  - Pain [Recovering/Resolving]
  - Dizziness [Recovering/Resolving]
  - Chills [Recovering/Resolving]
  - Arthralgia [Not Recovered/Not Resolved]
